FAERS Safety Report 4328430-7 (Version None)
Quarter: 2004Q1

REPORT INFORMATION
  Report Type: 
  Country: None (occurrence: None)
  Receive Date: 20040331
  Receipt Date: 20040325
  Transmission Date: 20041129
  Serious: Yes (Other)
  Sender: FDA-Public Use
  Company Number: PHBS2004JP03997

PATIENT
  Age: 69 Year
  Sex: Female

DRUGS (1)
  1. FASTIC #AJ [Suspect]
     Indication: DIABETES MELLITUS
     Dosage: 30 MG, TID
     Route: 048
     Dates: start: 20040205, end: 20040226

REACTIONS (10)
  - ABDOMINAL DISTENSION [None]
  - ALANINE AMINOTRANSFERASE INCREASED [None]
  - ASPARTATE AMINOTRANSFERASE INCREASED [None]
  - BLOOD ALKALINE PHOSPHATASE INCREASED [None]
  - BLOOD LACTATE DEHYDROGENASE INCREASED [None]
  - CHROMATURIA [None]
  - GAMMA-GLUTAMYLTRANSFERASE INCREASED [None]
  - HEPATIC FUNCTION ABNORMAL [None]
  - MALAISE [None]
  - MUSCLE TIGHTNESS [None]
